FAERS Safety Report 15951848 (Version 2)
Quarter: 2019Q1

REPORT INFORMATION
  Report Type: Spontaneous
  Country: FR (occurrence: FR)
  Receive Date: 20190212
  Receipt Date: 20190219
  Transmission Date: 20190417
  Serious: Yes (Other)
  Sender: FDA-Public Use
  Company Number: FR-PFIZER INC-2019053293

PATIENT
  Age: 59 Year
  Sex: Female

DRUGS (2)
  1. EFFEXOR LP [Suspect]
     Active Substance: VENLAFAXINE HYDROCHLORIDE
     Indication: ANXIETY DISORDER
     Dosage: UNK
     Dates: start: 2017
  2. EFFEXOR LP [Suspect]
     Active Substance: VENLAFAXINE HYDROCHLORIDE
     Dosage: 75 MG, DAILY
     Dates: end: 20190202

REACTIONS (17)
  - Cough [Unknown]
  - Swelling face [Unknown]
  - Mouth swelling [Unknown]
  - Dyspnoea [Unknown]
  - Dysphagia [Unknown]
  - Neoplasm recurrence [Unknown]
  - Dyspnoea [Unknown]
  - Chest discomfort [Unknown]
  - Night sweats [Unknown]
  - Anxiety [Unknown]
  - Tinnitus [Unknown]
  - Wheezing [Unknown]
  - Pharyngeal oedema [Unknown]
  - Pyrexia [Recovered/Resolved]
  - Blood pressure increased [Unknown]
  - Swollen tongue [Unknown]
  - Viral infection [Unknown]

NARRATIVE: CASE EVENT DATE: 201901
